FAERS Safety Report 19883296 (Version 1)
Quarter: 2021Q3

REPORT INFORMATION
  Report Type: Spontaneous
  Country: NO (occurrence: NO)
  Receive Date: 20210926
  Receipt Date: 20210926
  Transmission Date: 20211014
  Serious: Yes (Other)
  Sender: FDA-Public Use
  Company Number: NO-009507513-2109NOR004747

PATIENT
  Age: 70 Year
  Sex: Female

DRUGS (5)
  1. PARACETAMOL [Concomitant]
     Active Substance: ACETAMINOPHEN
     Indication: PAIN
     Dosage: 500 MILLIGRAM, Q8H, 1 TABLET 3 TIMES PER DAY
     Route: 048
  2. VAGIFEM [Concomitant]
     Active Substance: ESTRADIOL
     Indication: VULVOVAGINAL DRYNESS
     Dosage: 1 DOSAGE FORM, Q3D, 1 VAGINAL TABLET TWICE A WEEK
     Route: 067
  3. INLYTA [Suspect]
     Active Substance: AXITINIB
     Indication: RENAL CANCER
     Dosage: 3 MILLIGRAM, Q12H, 3 MG MORNING AND 3 MG EVENING. STARTED ON 5 MG X 2, BUT IS NOW USING 3 MG X 2
     Route: 048
     Dates: start: 20210115
  4. KEYTRUDA [Suspect]
     Active Substance: PEMBROLIZUMAB
     Indication: RENAL CANCER
     Dosage: 200 MILLIGRAM, Q3W, FIRST DOSE 15/1?21, RECEIVED 11 DOSES, CONCENTRATE FOR INFUSION SOLUTION, SOLUTI
     Route: 042
     Dates: start: 20210115
  5. LEVAXIN [Concomitant]
     Active Substance: LEVOTHYROXINE SODIUM
     Indication: HYPOTHYROIDISM
     Dosage: 1 DOSAGE FORM, DAILY (QD)
     Route: 048

REACTIONS (3)
  - Corticosteroid binding globulin increased [Recovered/Resolved with Sequelae]
  - Blood corticotrophin increased [Recovered/Resolved with Sequelae]
  - Adrenal insufficiency [Recovered/Resolved with Sequelae]

NARRATIVE: CASE EVENT DATE: 2021
